FAERS Safety Report 9548898 (Version 1)
Quarter: 2013Q3

REPORT INFORMATION
  Report Type: Spontaneous
  Country: CA (occurrence: CA)
  Receive Date: 20130924
  Receipt Date: 20130924
  Transmission Date: 20140515
  Serious: Yes (Other)
  Sender: FDA-Public Use
  Company Number: CA-PFIZER INC-2013271238

PATIENT
  Age: 49 Year
  Sex: Female
  Weight: 71.66 kg

DRUGS (11)
  1. LYRICA [Suspect]
     Indication: FIBROMYALGIA
     Dosage: 50 MG, DAILY
     Route: 048
  2. ALLEGRA [Concomitant]
     Dosage: 60 MG, 2X/DAY
  3. CALCIUM [Concomitant]
     Dosage: UNK
  4. DEXILANT [Concomitant]
     Dosage: 60 MG, DAILY
  5. VITAMIN D [Concomitant]
     Dosage: 10000 IU, WEEKLY
  6. METOPROLOL [Concomitant]
     Indication: HYPERTENSION
     Dosage: 25 MG, 2X/DAY
  7. LIPITOR [Concomitant]
     Indication: BLOOD CHOLESTEROL INCREASED
     Dosage: 10 MG,DAILY
  8. SPIRIVA [Concomitant]
     Dosage: DAILY
  9. ALVESCO [Concomitant]
     Dosage: 2 PUFFS, 1X/DAY
     Route: 055
  10. TYLENOL [Concomitant]
     Dosage: AS NEEDED
  11. CELEBREX [Concomitant]
     Dosage: 2X/DAY

REACTIONS (3)
  - Migraine with aura [Unknown]
  - Inflammatory bowel disease [Unknown]
  - Vision blurred [Not Recovered/Not Resolved]
